FAERS Safety Report 17848225 (Version 2)
Quarter: 2020Q2

REPORT INFORMATION
  Report Type: Report from Study
  Country: None (occurrence: CA)
  Receive Date: 20200601
  Receipt Date: 20200617
  Transmission Date: 20200714
  Serious: Yes (Death)
  Sender: FDA-Public Use
  Company Number: CA-ABBVIE-20K-028-3426318-00

PATIENT
  Age: 30 Year
  Sex: Male

DRUGS (5)
  1. GABAPENTIN. [Concomitant]
     Active Substance: GABAPENTIN
     Indication: ALCOHOL WITHDRAWAL SYNDROME
     Route: 048
     Dates: start: 20200103, end: 20200105
  2. FENTANYL. [Suspect]
     Active Substance: FENTANYL
     Indication: PRODUCT USED FOR UNKNOWN INDICATION
     Route: 065
  3. LORAZEPAM. [Concomitant]
     Active Substance: LORAZEPAM
     Indication: ALCOHOL WITHDRAWAL SYNDROME
     Route: 048
     Dates: start: 20200103, end: 20200105
  4. OLANZAPINE. [Concomitant]
     Active Substance: OLANZAPINE
     Indication: ALCOHOL WITHDRAWAL SYNDROME
     Dosage: EVERY BED TIME
     Route: 048
     Dates: start: 20191211, end: 20200105
  5. MAVIRET [Suspect]
     Active Substance: GLECAPREVIR\PIBRENTASVIR
     Indication: CHRONIC HEPATITIS C
     Route: 048
     Dates: start: 20191017, end: 20191212

REACTIONS (2)
  - Acute cardiac event [Fatal]
  - Overdose [Unknown]

NARRATIVE: CASE EVENT DATE: 20200105
